FAERS Safety Report 14205191 (Version 1)
Quarter: 2017Q4

REPORT INFORMATION
  Report Type: Report from Study
  Country: JP (occurrence: JP)
  Receive Date: 20171120
  Receipt Date: 20171120
  Transmission Date: 20180321
  Serious: Yes (Other)
  Sender: FDA-Public Use
  Company Number: JP-MYLANLABS-2017M1072849

PATIENT
  Age: 67 Year
  Sex: Male

DRUGS (4)
  1. NEDAPLATIN [Suspect]
     Active Substance: NEDAPLATIN
     Indication: OESOPHAGEAL CARCINOMA
     Dosage: 80 MG/M2 (4 CYCLES)
     Route: 065
  2. NEDAPLATIN [Suspect]
     Active Substance: NEDAPLATIN
     Dosage: 64 MG/M2 (4 CYCLES)
     Route: 065
  3. FLUOROURACIL. [Suspect]
     Active Substance: FLUOROURACIL
     Indication: OESOPHAGEAL CARCINOMA
     Dosage: 800 MG/M2 (4 CYCLES)
     Route: 065
  4. GIMERACIL;OTERACIL;TEGAFUR [Suspect]
     Active Substance: GIMERACIL\OTERACIL\TEGAFUR
     Indication: OESOPHAGEAL CARCINOMA
     Dosage: 100 MG/BODY (4 CYCLES)
     Route: 065

REACTIONS (7)
  - Mucosal inflammation [Unknown]
  - Thrombocytopenia [Unknown]
  - Pleural effusion [Unknown]
  - Anaemia [Unknown]
  - Dysphagia [Unknown]
  - Pneumonitis [Unknown]
  - Leukopenia [Unknown]
